FAERS Safety Report 6938492-6 (Version None)
Quarter: 2010Q3

REPORT INFORMATION
  Report Type: 
  Country: None (occurrence: None)
  Receive Date: 20100824
  Receipt Date: 20100810
  Transmission Date: 20110219
  Serious: Yes (Other)
  Sender: FDA-Public Use
  Company Number: US-ELI_LILLY_AND_COMPANY-US201008003159

PATIENT
  Sex: Female

DRUGS (4)
  1. CYMBALTA [Suspect]
     Indication: DEPRESSION
     Dosage: 60 MG, DAILY (1/D)
  2. CYMBALTA [Suspect]
     Dosage: 60 MG, DAILY (1/D)
  3. CYMBALTA [Suspect]
     Dosage: 60 MG, DAILY (1/D)
  4. CYMBALTA [Suspect]
     Dosage: 30 MG, DAILY (1/D)

REACTIONS (9)
  - CEREBROVASCULAR ACCIDENT [None]
  - CRYING [None]
  - DRUG INEFFECTIVE [None]
  - INSOMNIA [None]
  - MENOPAUSE [None]
  - PAIN [None]
  - PERIPHERAL COLDNESS [None]
  - RESTLESSNESS [None]
  - SLEEP APNOEA SYNDROME [None]
